FAERS Safety Report 12793366 (Version 2)
Quarter: 2017Q2

REPORT INFORMATION
  Report Type: Spontaneous
  Country: US (occurrence: US)
  Receive Date: 20160929
  Receipt Date: 20170407
  Transmission Date: 20170830
  Serious: No
  Sender: FDA-Public Use
  Company Number: US-JNJFOC-20160917847

PATIENT
  Sex: Male

DRUGS (26)
  1. RISPERDAL [Suspect]
     Active Substance: RISPERIDONE
     Indication: MOOD SWINGS
     Route: 048
     Dates: start: 201102, end: 201301
  2. RISPERDAL [Suspect]
     Active Substance: RISPERIDONE
     Indication: MOOD SWINGS
     Route: 048
     Dates: start: 1999, end: 2001
  3. RISPERDAL [Suspect]
     Active Substance: RISPERIDONE
     Indication: ATTENTION DEFICIT/HYPERACTIVITY DISORDER
     Route: 048
     Dates: start: 200902
  4. RISPERDAL [Suspect]
     Active Substance: RISPERIDONE
     Indication: MOOD SWINGS
     Dosage: VARYING DOSE OF 1 MG, 0.5 MG AND 2 MG
     Route: 048
     Dates: start: 200903
  5. RISPERDAL [Suspect]
     Active Substance: RISPERIDONE
     Indication: MOOD SWINGS
     Route: 048
     Dates: start: 201304, end: 201401
  6. RISPERDAL [Suspect]
     Active Substance: RISPERIDONE
     Indication: MOOD SWINGS
     Dosage: VARYING DOSE OF 1 MG, 0.5 MG AND 2 MG
     Route: 048
     Dates: start: 200904, end: 201301
  7. RISPERDAL [Suspect]
     Active Substance: RISPERIDONE
     Indication: MOOD SWINGS
     Route: 048
     Dates: start: 200810, end: 200901
  8. RISPERDAL [Suspect]
     Active Substance: RISPERIDONE
     Indication: SCHIZOAFFECTIVE DISORDER
     Dosage: VARYING DOSE OF 1 MG, 0.5 MG AND 2 MG
     Route: 048
     Dates: start: 200904, end: 201301
  9. RISPERDAL [Suspect]
     Active Substance: RISPERIDONE
     Indication: SCHIZOAFFECTIVE DISORDER
     Route: 048
     Dates: start: 201102, end: 201301
  10. RISPERDAL [Suspect]
     Active Substance: RISPERIDONE
     Indication: SCHIZOAFFECTIVE DISORDER
     Route: 048
     Dates: start: 2004, end: 2006
  11. RISPERDAL [Suspect]
     Active Substance: RISPERIDONE
     Indication: SCHIZOAFFECTIVE DISORDER
     Route: 048
     Dates: start: 1999, end: 2001
  12. RISPERIDONE. [Suspect]
     Active Substance: RISPERIDONE
     Indication: PRODUCT USED FOR UNKNOWN INDICATION
     Route: 048
  13. RISPERDAL [Suspect]
     Active Substance: RISPERIDONE
     Indication: SCHIZOAFFECTIVE DISORDER
     Route: 048
     Dates: start: 201304, end: 201401
  14. RISPERDAL [Suspect]
     Active Substance: RISPERIDONE
     Indication: SCHIZOAFFECTIVE DISORDER
     Route: 048
     Dates: start: 200902
  15. RISPERDAL [Suspect]
     Active Substance: RISPERIDONE
     Indication: ATTENTION DEFICIT/HYPERACTIVITY DISORDER
     Dosage: VARYING DOSE OF 1 MG, 0.5 MG AND 2 MG
     Route: 048
     Dates: start: 200903
  16. RISPERDAL [Suspect]
     Active Substance: RISPERIDONE
     Indication: ATTENTION DEFICIT/HYPERACTIVITY DISORDER
     Route: 048
     Dates: start: 200810, end: 200901
  17. RISPERDAL [Suspect]
     Active Substance: RISPERIDONE
     Indication: ATTENTION DEFICIT/HYPERACTIVITY DISORDER
     Dosage: VARYING DOSE OF 1 MG, 0.5 MG AND 2 MG
     Route: 048
     Dates: start: 200904, end: 201301
  18. RISPERDAL [Suspect]
     Active Substance: RISPERIDONE
     Indication: ATTENTION DEFICIT/HYPERACTIVITY DISORDER
     Route: 048
     Dates: start: 1999, end: 2001
  19. RISPERDAL [Suspect]
     Active Substance: RISPERIDONE
     Indication: ATTENTION DEFICIT/HYPERACTIVITY DISORDER
     Route: 048
     Dates: start: 201102, end: 201301
  20. RISPERIDONE. [Suspect]
     Active Substance: RISPERIDONE
     Indication: PRODUCT USED FOR UNKNOWN INDICATION
     Route: 048
  21. RISPERDAL [Suspect]
     Active Substance: RISPERIDONE
     Indication: MOOD SWINGS
     Route: 048
     Dates: start: 200902
  22. RISPERDAL [Suspect]
     Active Substance: RISPERIDONE
     Indication: SCHIZOAFFECTIVE DISORDER
     Dosage: VARYING DOSE OF 1 MG, 0.5 MG AND 2 MG
     Route: 048
     Dates: start: 200903
  23. RISPERDAL [Suspect]
     Active Substance: RISPERIDONE
     Indication: MOOD SWINGS
     Route: 048
     Dates: start: 2004, end: 2006
  24. RISPERDAL [Suspect]
     Active Substance: RISPERIDONE
     Indication: ATTENTION DEFICIT/HYPERACTIVITY DISORDER
     Route: 048
     Dates: start: 201304, end: 201401
  25. RISPERDAL [Suspect]
     Active Substance: RISPERIDONE
     Indication: SCHIZOAFFECTIVE DISORDER
     Route: 048
     Dates: start: 200810, end: 200901
  26. RISPERDAL [Suspect]
     Active Substance: RISPERIDONE
     Indication: ATTENTION DEFICIT/HYPERACTIVITY DISORDER
     Route: 048
     Dates: start: 2004, end: 2006

REACTIONS (3)
  - Obesity [Unknown]
  - Gynaecomastia [Unknown]
  - Extrapyramidal disorder [Unknown]

NARRATIVE: CASE EVENT DATE: 1999
